FAERS Safety Report 8395690-5 (Version None)
Quarter: 2012Q2

REPORT INFORMATION
  Report Type: 
  Country: None (occurrence: None)
  Receive Date: 20120530
  Receipt Date: 20120301
  Transmission Date: 20120825
  Serious: No
  Sender: FDA-Public Use
  Company Number: US-GLAXOSMITHKLINE-A0968212A

PATIENT
  Age: 2 Year
  Sex: Male

DRUGS (2)
  1. VENTOLIN [Suspect]
     Indication: RESPIRATORY SYNCYTIAL VIRUS INFECTION
     Dosage: 2PUFF SINGLE DOSE
     Route: 055
     Dates: start: 20120229, end: 20120229
  2. NO CONCURRENT MEDICATION [Concomitant]

REACTIONS (4)
  - HEART RATE INCREASED [None]
  - INSOMNIA [None]
  - PSYCHOMOTOR HYPERACTIVITY [None]
  - DRY MOUTH [None]
